FAERS Safety Report 10682608 (Version 1)
Quarter: 2014Q4

REPORT INFORMATION
  Report Type: Spontaneous
  Country: DE (occurrence: DE)
  Receive Date: 20141230
  Receipt Date: 20141230
  Transmission Date: 20150529
  Serious: Yes (Hospitalization)
  Sender: FDA-Public Use
  Company Number: DE-WATSON-2014-27567

PATIENT
  Age: 18 Year
  Sex: Male

DRUGS (29)
  1. TAVOR [Concomitant]
     Active Substance: LORAZEPAM
     Dosage: 3.5-2.5 MG/DAILY
     Route: 048
     Dates: start: 20110707, end: 20110717
  2. CITALOPRAM [Suspect]
     Active Substance: CITALOPRAM HYDROBROMIDE
     Dosage: 30 MG, DAILY
     Route: 048
     Dates: start: 20110729, end: 20110801
  3. CITALOPRAM [Suspect]
     Active Substance: CITALOPRAM HYDROBROMIDE
     Dosage: 20 MG, DAILY
     Route: 048
     Dates: start: 20110726, end: 20110728
  4. ZOLOFT [Concomitant]
     Active Substance: SERTRALINE HYDROCHLORIDE
     Indication: PRODUCT USED FOR UNKNOWN INDICATION
     Dosage: 100 UNK, UNK
     Route: 048
     Dates: end: 20110802
  5. ZOLOFT [Concomitant]
     Active Substance: SERTRALINE HYDROCHLORIDE
     Dosage: 150 UNK, UNK
     Route: 048
     Dates: start: 20110712, end: 20110725
  6. AMPHETAMIN SALTS [Concomitant]
     Indication: PRODUCT USED FOR UNKNOWN INDICATION
     Dosage: 5-15 MG/DAILY
     Route: 048
     Dates: start: 20110715
  7. MEDIKINET                          /00083801/ [Concomitant]
     Active Substance: METHYLPHENIDATE
     Indication: PRODUCT USED FOR UNKNOWN INDICATION
     Dosage: 10-30 MG/DAILY
     Route: 048
     Dates: start: 20110615, end: 20110619
  8. TAVOR [Concomitant]
     Active Substance: LORAZEPAM
     Dosage: 1 MG, DAILY
     Route: 048
     Dates: start: 20110806, end: 20110807
  9. SEROQUEL [Suspect]
     Active Substance: QUETIAPINE FUMARATE
     Dosage: 300 MG, DAILY
     Route: 048
     Dates: end: 20110630
  10. RISPERDAL [Concomitant]
     Active Substance: RISPERIDONE
     Indication: PRODUCT USED FOR UNKNOWN INDICATION
     Dosage: 1 MG, DAILY
     Route: 048
     Dates: end: 20110725
  11. SEROQUEL [Suspect]
     Active Substance: QUETIAPINE FUMARATE
     Dosage: 100 MG, DAILY
     Route: 048
     Dates: start: 20110730
  12. SEROQUEL [Suspect]
     Active Substance: QUETIAPINE FUMARATE
     Dosage: 300 MG, DAILY
     Route: 048
     Dates: start: 20110726, end: 20110727
  13. TAVOR [Concomitant]
     Active Substance: LORAZEPAM
     Dosage: 2-1.5 MG/DAILY
     Route: 048
     Dates: start: 20110718, end: 20110805
  14. TAVOR [Concomitant]
     Active Substance: LORAZEPAM
     Dosage: 4 MG, DAILY
     Route: 048
     Dates: start: 20110701, end: 20110706
  15. TAVOR [Concomitant]
     Active Substance: LORAZEPAM
     Dosage: 2 MG, DAILY
     Route: 048
     Dates: start: 20110620, end: 20110630
  16. RISPERDAL [Concomitant]
     Active Substance: RISPERIDONE
     Dosage: 1.5 MG, DAILY
     Route: 048
     Dates: start: 20110726
  17. CITALOPRAM [Suspect]
     Active Substance: CITALOPRAM HYDROBROMIDE
     Indication: PRODUCT USED FOR UNKNOWN INDICATION
     Dosage: 10 MG, DAILY
     Route: 048
     Dates: start: 20110804, end: 20110806
  18. SEROQUEL [Suspect]
     Active Substance: QUETIAPINE FUMARATE
     Dosage: 400 MG, DAILY
     Route: 048
     Dates: start: 20110720, end: 20110725
  19. ZOLOFT [Concomitant]
     Active Substance: SERTRALINE HYDROCHLORIDE
     Dosage: 50 UNK, UNK
     Route: 048
     Dates: start: 20110729, end: 20110801
  20. ZOLOFT [Concomitant]
     Active Substance: SERTRALINE HYDROCHLORIDE
     Dosage: 100 MG, DAILY
     Route: 048
     Dates: start: 20110530, end: 20110711
  21. AMPHETAMIN SALTS [Concomitant]
     Dosage: 20 MG, DAILY
     Route: 048
     Dates: end: 20110607
  22. TAVOR [Concomitant]
     Active Substance: LORAZEPAM
     Indication: PRODUCT USED FOR UNKNOWN INDICATION
     Dosage: .5 MG, DAILY
     Route: 048
     Dates: end: 20110808
  23. CITALOPRAM [Suspect]
     Active Substance: CITALOPRAM HYDROBROMIDE
     Dosage: 20 MG, DAILY
     Route: 048
     Dates: start: 20110802, end: 20110803
  24. CITALOPRAM [Suspect]
     Active Substance: CITALOPRAM HYDROBROMIDE
     Dosage: UNK
  25. SEROQUEL [Suspect]
     Active Substance: QUETIAPINE FUMARATE
     Indication: PRODUCT USED FOR UNKNOWN INDICATION
     Dosage: 200 MG, DAILY
     Route: 048
     Dates: start: 20110728, end: 20110729
  26. SEROQUEL [Suspect]
     Active Substance: QUETIAPINE FUMARATE
     Dosage: 500 MG, DAILY
     Route: 048
     Dates: start: 20110701, end: 20110719
  27. ZOLOFT [Concomitant]
     Active Substance: SERTRALINE HYDROCHLORIDE
     Dosage: 100 UNK, UNK
     Route: 048
     Dates: start: 20110726, end: 20110728
  28. ZOLOFT [Concomitant]
     Active Substance: SERTRALINE HYDROCHLORIDE
     Dosage: 50 MG, DAILY
     Route: 048
     Dates: start: 20110527, end: 20110529
  29. DIPIPERON [Concomitant]
     Active Substance: PIPAMPERONE
     Indication: PRODUCT USED FOR UNKNOWN INDICATION
     Dosage: 40 MG, DAILY
     Route: 048
     Dates: start: 20110613

REACTIONS (1)
  - Transaminases increased [Recovered/Resolved]

NARRATIVE: CASE EVENT DATE: 20110727
